FAERS Safety Report 8741959 (Version 1)
Quarter: 2012Q4

REPORT INFORMATION
  Report Type: 
  Country: DE (occurrence: DE)
  Receive Date: 20120830
  Receipt Date: 20120830
  Transmission Date: 20130627
  Serious: Yes (Hospitalization)
  Sender: FDA-Public Use
  Company Number: DE-UCBSA-063162

PATIENT
  Age: 57 Year
  Sex: Female

DRUGS (8)
  1. CIMZIA [Suspect]
     Indication: PSORIATIC ARTHROPATHY
     Route: 058
     Dates: start: 20120125, end: 20120718
  2. CSA [Concomitant]
     Indication: PSORIATIC ARTHROPATHY
     Dosage: SINGLE DOSE:50, DAILY DOSE:100
     Route: 048
     Dates: start: 201112
  3. L-THYROXIN [Concomitant]
     Dosage: SINGLE DOSE:50, DAILY DOSE:50
     Route: 048
  4. MARCUMAR [Concomitant]
     Indication: PULMONARY EMBOLISM
     Dosage: ACC TO INR
     Route: 048
     Dates: start: 201109
  5. CANDERSATAN [Concomitant]
     Indication: HYPERTENSION
     Dosage: SINGLE DOSE:8, DAILY DOSE: 8
     Route: 048
  6. PANTOZOL [Concomitant]
     Indication: GASTROOESOPHAGEAL REFLUX DISEASE
     Dosage: SINGLE DOSE:40, TOTAL DAILY DOSE:40
     Route: 048
  7. PREDNISON [Concomitant]
     Indication: PSORIATIC ARTHROPATHY
     Dosage: SINGLE DOSE: 10, DAILY DOSE: 10
     Route: 048
     Dates: start: 2008
  8. PREDNISON [Concomitant]
     Indication: PSORIATIC ARTHROPATHY
     Dosage: 50 MG

REACTIONS (3)
  - Pericarditis [Recovering/Resolving]
  - Pericardial effusion [Recovering/Resolving]
  - C-reactive protein increased [Recovered/Resolved]
